FAERS Safety Report 16088506 (Version 3)
Quarter: 2020Q4

REPORT INFORMATION
  Report Type: Spontaneous
  Country: US (occurrence: US)
  Receive Date: 20190319
  Receipt Date: 20201215
  Transmission Date: 20210113
  Serious: No
  Sender: FDA-Public Use
  Company Number: US-PFIZER INC-2019113461

PATIENT
  Age: 47 Year
  Sex: Female

DRUGS (1)
  1. SOMAVERT [Suspect]
     Active Substance: PEGVISOMANT
     Dosage: 20 MG, DAILY
     Dates: start: 20200113

REACTIONS (5)
  - Back pain [Unknown]
  - Mobility decreased [Unknown]
  - Insulin-like growth factor increased [Unknown]
  - Drug ineffective [Unknown]
  - Weight increased [Unknown]
